FAERS Safety Report 12499172 (Version 1)
Quarter: 2016Q2

REPORT INFORMATION
  Report Type: Spontaneous
  Country: FR (occurrence: FR)
  Receive Date: 20160627
  Receipt Date: 20160627
  Transmission Date: 20160815
  Serious: Yes (Other)
  Sender: FDA-Public Use
  Company Number: FR-AUROBINDO-AUR-APL-2016-08145

PATIENT
  Sex: Male

DRUGS (1)
  1. ZOLPIDEM ARROW 10 MG FILM-COATED TABLETS [Suspect]
     Active Substance: ZOLPIDEM TARTRATE
     Indication: INSOMNIA
     Dosage: UNK
     Route: 048
     Dates: end: 2016

REACTIONS (4)
  - Diplopia [Not Recovered/Not Resolved]
  - IIIrd nerve disorder [Not Recovered/Not Resolved]
  - Inflammation [None]
  - Ophthalmoplegia [None]

NARRATIVE: CASE EVENT DATE: 2016
